FAERS Safety Report 7583075-0 (Version None)
Quarter: 2011Q2

REPORT INFORMATION
  Report Type: 
  Country: None (occurrence: None)
  Receive Date: 20110630
  Receipt Date: 20110623
  Transmission Date: 20111010
  Serious: Yes (Death, Hospitalization)
  Sender: FDA-Public Use
  Company Number: JP-JNJFOC-20091107894

PATIENT
  Sex: Female

DRUGS (39)
  1. DOXORUBICIN HCL [Suspect]
     Indication: OVARIAN CANCER RECURRENT
     Route: 042
     Dates: start: 20091029, end: 20091029
  2. DOXORUBICIN HCL [Suspect]
     Route: 042
     Dates: start: 20090903, end: 20090903
  3. ATARAX [Concomitant]
     Route: 048
     Dates: start: 20091113, end: 20091119
  4. FLAVITAN [Concomitant]
     Route: 065
     Dates: start: 20091121, end: 20091121
  5. ISOTONIC SODIUM CHLORIDE SOLUTION [Concomitant]
     Route: 041
     Dates: start: 20091114, end: 20091114
  6. ISOTONIC SODIUM CHLORIDE SOLUTION [Concomitant]
     Route: 041
     Dates: start: 20091112, end: 20091112
  7. AZUNOL [Concomitant]
     Route: 061
     Dates: start: 20091120, end: 20091121
  8. SOLITA-T3 [Concomitant]
     Route: 041
     Dates: start: 20091112, end: 20091115
  9. MAXIPIME [Concomitant]
     Route: 013
     Dates: start: 20091112, end: 20091115
  10. MINOFIT [Concomitant]
     Route: 042
     Dates: start: 20091112, end: 20091112
  11. PYDOXAL [Concomitant]
     Route: 042
     Dates: start: 20091120, end: 20091120
  12. HACHIAZULE [Concomitant]
     Route: 049
     Dates: start: 20091112, end: 20091118
  13. HACHIAZULE [Concomitant]
     Route: 049
     Dates: start: 20091118, end: 20091121
  14. NERISONA [Concomitant]
     Route: 061
     Dates: start: 20091113, end: 20091113
  15. WHITE PETROLATUM [Concomitant]
     Route: 061
     Dates: start: 20091120, end: 20091120
  16. ALL OTHER THERAPEUTIC PRODUCT [Concomitant]
     Route: 062
     Dates: start: 20091121, end: 20091121
  17. GRAN [Concomitant]
     Route: 013
     Dates: start: 20091112, end: 20091112
  18. DECADRON [Concomitant]
     Route: 042
     Dates: start: 20091120, end: 20091121
  19. DECADRON [Concomitant]
     Route: 042
     Dates: start: 20091119, end: 20091119
  20. NEUTROGIN [Concomitant]
     Route: 058
     Dates: start: 20091116, end: 20091121
  21. SEROTONE [Concomitant]
     Indication: PROPHYLAXIS
     Route: 013
     Dates: start: 20091029, end: 20091029
  22. POVIDONE IODINE [Concomitant]
     Route: 049
     Dates: start: 20091113, end: 20091113
  23. ALLOPURINOL [Concomitant]
     Route: 048
     Dates: start: 20091119, end: 20091119
  24. DECADRON [Concomitant]
     Indication: PROPHYLAXIS
     Route: 042
     Dates: start: 20091029, end: 20091029
  25. DECADRON [Concomitant]
     Route: 042
     Dates: start: 20091117, end: 20091118
  26. DECADRON [Concomitant]
     Route: 042
     Dates: start: 20091112, end: 20091112
  27. CHLORPHENIRAMINE MALEATE [Concomitant]
     Route: 013
     Dates: start: 20091112, end: 20091115
  28. DOXORUBICIN HCL [Suspect]
     Route: 042
  29. FLURBIPROFEN [Concomitant]
     Route: 042
     Dates: start: 20091114
  30. MORPHINE HCL ELIXIR [Concomitant]
     Indication: OVARIAN CANCER RECURRENT
     Route: 013
     Dates: start: 20091112, end: 20091112
  31. DIPHENHYDRAMINE HCL [Concomitant]
     Indication: PROPHYLAXIS
     Route: 061
     Dates: start: 20091029
  32. EVAMYL [Concomitant]
     Route: 048
     Dates: start: 20091112, end: 20091112
  33. LACTATED RINGER'S [Concomitant]
     Route: 041
     Dates: start: 20091112, end: 20091118
  34. ALL OTHER THERAPEUTIC PRODUCT [Concomitant]
     Route: 041
     Dates: start: 20091115, end: 20091115
  35. DEXALTIN [Concomitant]
     Route: 049
     Dates: start: 20091112, end: 20091112
  36. WHITE PETROLATUM [Concomitant]
     Route: 061
     Dates: start: 20091118, end: 20091118
  37. TPN [Concomitant]
     Route: 041
     Dates: start: 20091120, end: 20091121
  38. FLURBIPROFEN [Concomitant]
     Route: 013
     Dates: start: 20091112, end: 20091112
  39. MORPHINE HCL ELIXIR [Concomitant]
     Route: 042
     Dates: start: 20091120, end: 20091121

REACTIONS (5)
  - BONE MARROW FAILURE [None]
  - STEVENS-JOHNSON SYNDROME [None]
  - PYREXIA [None]
  - DISSEMINATED INTRAVASCULAR COAGULATION [None]
  - SEPSIS [None]
